FAERS Safety Report 6773064-8 (Version None)
Quarter: 2010Q2

REPORT INFORMATION
  Report Type: 
  Country: None (occurrence: None)
  Receive Date: 20100616
  Receipt Date: 20100611
  Transmission Date: 20101027
  Serious: Yes (Death)
  Sender: FDA-Public Use
  Company Number: CZ-PFIZER INC-2006150566

PATIENT
  Age: 68 Year
  Sex: Male
  Weight: 64 kg

DRUGS (1)
  1. SUNITINIB MALATE [Suspect]
     Indication: METASTATIC RENAL CELL CARCINOMA
     Dosage: 50 MG, 1X/DAY
     Route: 048
     Dates: start: 20061004, end: 20061101

REACTIONS (1)
  - PULMONARY EMBOLISM [None]
